FAERS Safety Report 9653186 (Version 1)
Quarter: 2013Q4

REPORT INFORMATION
  Report Type: Spontaneous
  Country: US (occurrence: US)
  Receive Date: 20131029
  Receipt Date: 20131029
  Transmission Date: 20140711
  Serious: Yes (Hospitalization)
  Sender: FDA-Public Use
  Company Number: US-VIIV HEALTHCARE LIMITED-A1047332A

PATIENT
  Age: 49 Year
  Sex: Male

DRUGS (3)
  1. EPZICOM [Suspect]
     Indication: PRODUCT USED FOR UNKNOWN INDICATION
     Route: 065
  2. TRACLEER [Suspect]
     Indication: PULMONARY ARTERIAL HYPERTENSION
     Route: 048
     Dates: start: 2010
  3. ADCIRCA [Concomitant]

REACTIONS (3)
  - Cardiac failure congestive [Recovering/Resolving]
  - Vomiting [Recovering/Resolving]
  - Fluid retention [Recovering/Resolving]
